FAERS Safety Report 6820135-3 (Version None)
Quarter: 2010Q3

REPORT INFORMATION
  Report Type: 
  Country: None (occurrence: None)
  Receive Date: 20100707
  Receipt Date: 20100623
  Transmission Date: 20110219
  Serious: Yes (Hospitalization)
  Sender: FDA-Public Use
  Company Number: IE-MERCK-1007USA00128

PATIENT
  Age: 64 Year
  Sex: Female

DRUGS (3)
  1. DECADRON [Suspect]
     Route: 048
  2. THALIDOMIDE [Concomitant]
     Route: 065
  3. BORTEZOMIB [Suspect]
     Route: 042

REACTIONS (1)
  - DRUG INEFFECTIVE [None]
